FAERS Safety Report 4273791-0 (Version None)
Quarter: 2004Q1

REPORT INFORMATION
  Report Type: 
  Country: None (occurrence: None)
  Receive Date: 20040119
  Receipt Date: 20040109
  Transmission Date: 20041129
  Serious: Yes (Disabling)
  Sender: FDA-Public Use
  Company Number: WAES 0401MEX00002

PATIENT
  Age: 76 Year
  Sex: Female

DRUGS (4)
  1. FOSAMAX [Suspect]
     Indication: OSTEOPOROSIS
     Route: 048
     Dates: start: 20040106, end: 20040106
  2. DITREI [Concomitant]
     Indication: CEREBROVASCULAR INSUFFICIENCY
     Route: 048
     Dates: start: 20030101
  3. TRENTAL [Concomitant]
     Indication: CEREBROVASCULAR INSUFFICIENCY
     Route: 048
  4. PROPRANOLOL HYDROCHLORIDE [Concomitant]
     Indication: HYPERTENSION
     Route: 048
     Dates: start: 19880101

REACTIONS (6)
  - ARRHYTHMIA [None]
  - BONE PAIN [None]
  - CHEST PAIN [None]
  - DEPRESSION [None]
  - DIARRHOEA [None]
  - DIZZINESS [None]
